FAERS Safety Report 8032687-9 (Version None)
Quarter: 2012Q1

REPORT INFORMATION
  Report Type: 
  Country: None (occurrence: None)
  Receive Date: 20120110
  Receipt Date: 20120103
  Transmission Date: 20120608
  Serious: Yes (Hospitalization, Other)
  Sender: FDA-Public Use
  Company Number: US-BAYER-2011-045990

PATIENT
  Age: 37 Year
  Sex: Female
  Weight: 104.31 kg

DRUGS (6)
  1. MAGNESIUM HYDROXIDE TAB [Concomitant]
     Dosage: UNK
     Dates: start: 20080101, end: 20090101
  2. NEXIUM [Concomitant]
     Dosage: 40 MG, UNK
     Route: 048
  3. ATENOLOL [Concomitant]
     Dosage: 25 MG, UNK
     Route: 048
  4. YASMIN [Suspect]
     Indication: CONTRACEPTION
     Dosage: UNK
     Route: 048
     Dates: start: 20030101
  5. YASMIN [Suspect]
     Dosage: UNK
     Route: 048
     Dates: start: 20060101
  6. HYDROCHLOROTHIAZIDE [Concomitant]
     Dosage: 25 MG, UNK
     Route: 048

REACTIONS (6)
  - GALLBLADDER DISORDER [None]
  - EMOTIONAL DISTRESS [None]
  - PAIN [None]
  - INJURY [None]
  - DEFORMITY [None]
  - CHOLECYSTITIS CHRONIC [None]
